FAERS Safety Report 14545347 (Version 2)
Quarter: 2018Q3

REPORT INFORMATION
  Report Type: Report from Study
  Country: US (occurrence: US)
  Receive Date: 20180218
  Receipt Date: 20180723
  Transmission Date: 20181010
  Serious: Yes (Other)
  Sender: FDA-Public Use
  Company Number: PHEH2018US006401

PATIENT
  Sex: Male
  Weight: 84.3 kg

DRUGS (3)
  1. GILENYA [Suspect]
     Active Substance: FINGOLIMOD HYDROCHLORIDE
     Dosage: 0.5 MG, QD
     Route: 048
  2. GILENYA [Suspect]
     Active Substance: FINGOLIMOD HYDROCHLORIDE
     Indication: MULTIPLE SCLEROSIS
     Dosage: 0.5 MG, QD
     Route: 048
     Dates: start: 20170713
  3. GILENYA [Suspect]
     Active Substance: FINGOLIMOD HYDROCHLORIDE
     Dosage: 0.5 MG, QOD
     Route: 048

REACTIONS (8)
  - Eye swelling [Unknown]
  - Leukopenia [Unknown]
  - Uveitis [Unknown]
  - Prescribed underdose [Unknown]
  - Lymphopenia [Unknown]
  - Visual impairment [Unknown]
  - Visual acuity tests abnormal [Unknown]
  - Eyelid oedema [Unknown]
